FAERS Safety Report 12953204 (Version 1)
Quarter: 2016Q4

REPORT INFORMATION
  Report Type: Spontaneous
  Country: US (occurrence: US)
  Receive Date: 20161117
  Receipt Date: 20161117
  Transmission Date: 20170207
  Serious: Yes (Hospitalization)
  Sender: FDA-Public Use
  Company Number: US-ELI_LILLY_AND_COMPANY-US201611004105

PATIENT
  Sex: Male

DRUGS (3)
  1. LANTUS [Concomitant]
     Active Substance: INSULIN GLARGINE
     Dosage: 20 U, UNKNOWN
  2. HUMULIN R [Suspect]
     Active Substance: INSULIN HUMAN
     Indication: TYPE 2 DIABETES MELLITUS
     Dosage: UNK, AS NEEDED
     Route: 065
  3. HUMULIN R [Suspect]
     Active Substance: INSULIN HUMAN
     Dosage: UNK, AS NEEDED
     Route: 065

REACTIONS (10)
  - Tendon rupture [Unknown]
  - Neuropathy peripheral [Unknown]
  - Hyperkeratosis [Unknown]
  - Cataract [Recovered/Resolved]
  - Impaired healing [Unknown]
  - Infection [Unknown]
  - Lethargy [Unknown]
  - Feeling abnormal [Unknown]
  - Sensory loss [Unknown]
  - Fatigue [Unknown]
